FAERS Safety Report 21868903 (Version 1)
Quarter: 2023Q1

REPORT INFORMATION
  Report Type: Spontaneous
  Country: BE (occurrence: None)
  Receive Date: 20230117
  Receipt Date: 20230117
  Transmission Date: 20230417
  Serious: Yes (Other)
  Sender: FDA-Public Use
  Company Number: BE-ROCHE-3097581

PATIENT

DRUGS (2)
  1. MABTHERA [Suspect]
     Active Substance: RITUXIMAB
     Indication: Glomerulonephritis membranous
     Route: 065
  2. MABTHERA [Suspect]
     Active Substance: RITUXIMAB
     Indication: Focal segmental glomerulosclerosis

REACTIONS (3)
  - Off label use [Unknown]
  - Nephrotic syndrome [Unknown]
  - Ill-defined disorder [Unknown]
